FAERS Safety Report 5250100-1 (Version None)
Quarter: 2007Q1

REPORT INFORMATION
  Report Type: 
  Country: None (occurrence: None)
  Receive Date: 20070228
  Receipt Date: 20060227
  Transmission Date: 20070707
  Serious: No
  Sender: FDA-Public Use
  Company Number: US-GLAXOSMITHKLINE-A0592488A

PATIENT
  Age: 33 Year
  Sex: Female
  Weight: 79.5 kg

DRUGS (4)
  1. LAMICTAL [Suspect]
     Indication: BIPOLAR DISORDER
     Dosage: 100MG PER DAY
     Route: 048
     Dates: start: 20051201
  2. ALLEGRA [Concomitant]
     Route: 048
     Dates: start: 20051201
  3. DESOGEN [Concomitant]
     Route: 048
     Dates: start: 19981101
  4. WELLBUTRIN XL [Concomitant]
     Route: 048
     Dates: start: 20050525

REACTIONS (3)
  - ABDOMINAL PAIN UPPER [None]
  - MOUTH ULCERATION [None]
  - SKIN IRRITATION [None]
